FAERS Safety Report 4803351-1 (Version None)
Quarter: 2005Q4

REPORT INFORMATION
  Report Type: 
  Country: None (occurrence: None)
  Receive Date: 20051013
  Receipt Date: 20050923
  Transmission Date: 20060501
  Serious: Yes (Hospitalization)
  Sender: FDA-Public Use
  Company Number: 0509-498

PATIENT
  Sex: Female

DRUGS (1)
  1. DUONEB [Suspect]
     Dosage: 3  1/2- 4 YEARS

REACTIONS (2)
  - DRUG INEFFECTIVE [None]
  - DYSPNOEA [None]
